FAERS Safety Report 12119432 (Version 3)
Quarter: 2016Q1

REPORT INFORMATION
  Report Type: Spontaneous
  Country: US (occurrence: US)
  Receive Date: 20160226
  Receipt Date: 20160325
  Transmission Date: 20160526
  Serious: Yes (Other)
  Sender: FDA-Public Use
  Company Number: US-009507513-1602USA012145

PATIENT
  Age: 8 Decade
  Sex: Female

DRUGS (6)
  1. HYDROCORTONE [Suspect]
     Active Substance: HYDROCORTISONE
     Indication: HEADACHE
  2. DEXAMETHASONE. [Suspect]
     Active Substance: DEXAMETHASONE
     Indication: NECK PAIN
     Dosage: 8 MG, UNK, ADMINISTERED INTO THE CERVICAL EPIDURAL SPACE AND MULTIPLE RIGHT CERVICAL FACET JOINTS
     Route: 008
  3. PRASTERONE [Concomitant]
     Active Substance: PRASTERONE
     Indication: HEADACHE
     Dosage: 10 MG, QD
  4. HYDROCORTONE [Suspect]
     Active Substance: HYDROCORTISONE
     Indication: NECK PAIN
     Dosage: 60 MG IN THE MORNING AND 40 MG IN THE EVENING
     Route: 048
  5. TRIAMCINOLONE [Suspect]
     Active Substance: TRIAMCINOLONE
     Indication: NECK PAIN
     Dosage: 10 MG, UNK, ADMINISTERED INTO THE CERVICAL EPIDURAL SPACE AND MULTIPLE RIGHT CERVICAL FACET JOINTS
     Route: 008
  6. DEXAMETHASONE. [Suspect]
     Active Substance: DEXAMETHASONE
     Indication: HEADACHE

REACTIONS (6)
  - Hypothalamic pituitary adrenal axis suppression [Recovered/Resolved]
  - Weight increased [Recovered/Resolved]
  - Cushingoid [Recovered/Resolved]
  - Agitation [Recovered/Resolved]
  - Insomnia [Recovered/Resolved]
  - Swelling face [Recovered/Resolved]
